FAERS Safety Report 9283139 (Version 1)
Quarter: 2013Q2

REPORT INFORMATION
  Report Type: Spontaneous
  Country: US (occurrence: US)
  Receive Date: 20130510
  Receipt Date: 20130510
  Transmission Date: 20140414
  Serious: No
  Sender: FDA-Public Use
  Company Number: US-GLAXOSMITHKLINE-A0982716A

PATIENT
  Sex: Female

DRUGS (3)
  1. TYKERB [Suspect]
     Dosage: 250MG UNKNOWN
     Route: 065
  2. TAMOXIFEN [Concomitant]
  3. LOVENOX [Concomitant]

REACTIONS (2)
  - Vaginal haemorrhage [Unknown]
  - Dry eye [Unknown]
